FAERS Safety Report 7625711-6 (Version None)
Quarter: 2011Q3

REPORT INFORMATION
  Report Type: 
  Country: None (occurrence: None)
  Receive Date: 20110721
  Receipt Date: 20110707
  Transmission Date: 20111222
  Serious: Yes (Hospitalization, Other)
  Sender: FDA-Public Use
  Company Number: GB-RANBAXY-2008RR-18759

PATIENT
  Age: 34 Year
  Sex: Male

DRUGS (16)
  1. MINOCYCLINE HCL [Suspect]
     Indication: MYCOBACTERIUM ABSCESSUS INFECTION
     Route: 065
  2. COLISTIN SULFATE [Suspect]
     Indication: PSEUDOMONAS INFECTION
     Dosage: UNK
     Route: 042
  3. COLISTIN SULFATE [Suspect]
     Indication: PRODUCT USED FOR UNKNOWN INDICATION
  4. TOBI [Concomitant]
     Indication: MYCOBACTERIUM ABSCESSUS INFECTION
  5. CIPROFLOXACIN [Suspect]
     Indication: PRODUCT USED FOR UNKNOWN INDICATION
     Route: 048
  6. CLARITHROMYCIN [Suspect]
     Indication: PSEUDOMONAS INFECTION
  7. INTERFERON GAMMA-1A [Suspect]
     Indication: PSEUDOMONAS INFECTION
     Route: 058
  8. TOBRAMYCIN [Suspect]
     Indication: MYCOBACTERIUM ABSCESSUS INFECTION
  9. OMEPRAZOLE [Concomitant]
     Indication: GASTROOESOPHAGEAL REFLUX DISEASE
     Route: 065
  10. INTERFERON GAMMA-1A [Suspect]
     Indication: MYCOBACTERIUM ABSCESSUS INFECTION
  11. TOBRAMYCIN [Suspect]
     Indication: PSEUDOMONAS INFECTION
     Route: 055
  12. AZITHROMYCIN [Suspect]
     Indication: PRODUCT USED FOR UNKNOWN INDICATION
     Route: 065
  13. MEROPENEM [Suspect]
     Indication: PRODUCT USED FOR UNKNOWN INDICATION
     Dosage: UNK
     Route: 042
  14. CLARITHROMYCIN [Suspect]
     Indication: MYCOBACTERIUM ABSCESSUS INFECTION
     Route: 065
  15. MINOCYCLINE HCL [Suspect]
     Indication: PSEUDOMONAS INFECTION
  16. TOBI [Concomitant]
     Indication: PSEUDOMONAS INFECTION
     Route: 055

REACTIONS (11)
  - ABDOMINAL PAIN [None]
  - DIARRHOEA [None]
  - HYPOTENSION [None]
  - DEHYDRATION [None]
  - PYREXIA [None]
  - ABDOMINAL DISTENSION [None]
  - TACHYCARDIA [None]
  - CLOSTRIDIUM DIFFICILE COLITIS [None]
  - NAUSEA [None]
  - PSEUDOMEMBRANOUS COLITIS [None]
  - C-REACTIVE PROTEIN INCREASED [None]
